FAERS Safety Report 7372708-X (Version None)
Quarter: 2011Q1

REPORT INFORMATION
  Report Type: 
  Country: None (occurrence: None)
  Receive Date: 20110324
  Receipt Date: 20110309
  Transmission Date: 20110831
  Serious: Yes (Other)
  Sender: FDA-Public Use
  Company Number: US-BAYER-201038401NA

PATIENT
  Sex: Female

DRUGS (10)
  1. YASMIN [Suspect]
     Dosage: UNK
     Dates: start: 20060306
  2. YASMIN [Suspect]
     Dosage: UNK
     Dates: start: 20010101
  3. YAZ [Suspect]
     Indication: PRODUCT USED FOR UNKNOWN INDICATION
     Route: 048
     Dates: start: 20050901
  4. ROXICET [Concomitant]
     Route: 048
  5. YASMIN [Suspect]
  6. LIPITOR [Concomitant]
     Dosage: 10 MG, UNK
     Route: 048
  7. METFORMIN [Concomitant]
     Dosage: 500 MG, UNK
     Route: 048
  8. LEXAPRO [Concomitant]
     Dosage: 20 MG, UNK
     Route: 048
  9. YASMIN [Suspect]
     Indication: PRODUCT USED FOR UNKNOWN INDICATION
     Dosage: UNK UNK, UNK
     Route: 048
     Dates: start: 20050901
  10. GLUCOPHAGE [Concomitant]

REACTIONS (1)
  - CHOLECYSTECTOMY [None]
